FAERS Safety Report 4994410-1 (Version None)
Quarter: 2006Q2

REPORT INFORMATION
  Report Type: 
  Country: None (occurrence: None)
  Receive Date: 20060503
  Receipt Date: 20060421
  Transmission Date: 20061013
  Serious: Yes (Hospitalization)
  Sender: FDA-Public Use
  Company Number: JP-2006-008318

PATIENT
  Age: 44 Year
  Sex: Female

DRUGS (2)
  1. MAGNEVIST [Suspect]
     Indication: NUCLEAR MAGNETIC RESONANCE IMAGING
     Dosage: 15 ML, 1 DOSE, INTRAVENOUS
     Route: 042
     Dates: start: 20060407, end: 20060407
  2. FLUNASE (FLUTICASONE PROPIONATE) SPRAY [Concomitant]

REACTIONS (4)
  - HYPOAESTHESIA [None]
  - INJECTION SITE JOINT MOVEMENT IMPAIRMENT [None]
  - INJECTION SITE SWELLING [None]
  - PAIN IN EXTREMITY [None]
